FAERS Safety Report 7672389-1 (Version None)
Quarter: 2011Q3

REPORT INFORMATION
  Report Type: 
  Country: None (occurrence: None)
  Receive Date: 20110809
  Receipt Date: 20110725
  Transmission Date: 20111222
  Serious: Yes (Other)
  Sender: FDA-Public Use
  Company Number: ZA-WATSON-2011-11980

PATIENT
  Age: 16 Year
  Sex: Male

DRUGS (5)
  1. HALOPERIDOL [Suspect]
     Indication: PSYCHOTIC DISORDER
     Dosage: 1.5 MG, BID
  2. ZUCLOPENTHIXOL ACETATE [Suspect]
     Indication: PSYCHOTIC DISORDER
     Dosage: 25 MG, UNKNOWN
  3. METHAMPHETAMINE HYDROCHLORIDE [Suspect]
     Indication: SUBSTANCE ABUSE
     Dosage: UNK
  4. CANNABIS [Suspect]
     Indication: SUBSTANCE ABUSE
     Dosage: UNK
  5. DIAZEPAM [Suspect]
     Indication: PRODUCT USED FOR UNKNOWN INDICATION
     Dosage: 20 MG, TID

REACTIONS (1)
  - NEUROLEPTIC MALIGNANT SYNDROME [None]
